FAERS Safety Report 8347896-9 (Version None)
Quarter: 2012Q2

REPORT INFORMATION
  Report Type: 
  Country: None (occurrence: None)
  Receive Date: 20120507
  Receipt Date: 20120427
  Transmission Date: 20120825
  Serious: Yes (Other)
  Sender: FDA-Public Use
  Company Number: 2012S1000542

PATIENT
  Age: 86 Year
  Sex: Male

DRUGS (7)
  1. OLMESARTAN MEDOXOMIL [Concomitant]
  2. ALPROSTADIL [Concomitant]
  3. LASOPRAZOLE [Concomitant]
  4. NEBIVOLOL [Concomitant]
  5. LIVALO [Suspect]
     Indication: ACUTE MYOCARDIAL INFARCTION
     Dosage: 2 MG;QX;PO, 4 MG;1X;PO
     Route: 048
     Dates: start: 20120126, end: 20120313
  6. LIVALO [Suspect]
     Indication: ACUTE MYOCARDIAL INFARCTION
     Dosage: 2 MG;QX;PO, 4 MG;1X;PO
     Route: 048
     Dates: start: 20120314, end: 20120424
  7. LVGEBILEI [Concomitant]

REACTIONS (2)
  - MYOCARDIAL INFARCTION [None]
  - MUSCULAR WEAKNESS [None]
